FAERS Safety Report 9304006 (Version 1)
Quarter: 2013Q2

REPORT INFORMATION
  Report Type: Spontaneous
  Country: US (occurrence: US)
  Receive Date: 20130522
  Receipt Date: 20130522
  Transmission Date: 20140414
  Serious: Yes (Hospitalization)
  Sender: FDA-Public Use
  Company Number: US-BAYER-2013-063413

PATIENT
  Age: 42 Year
  Sex: Female
  Weight: 49.89 kg

DRUGS (5)
  1. YAZ [Suspect]
  2. GIANVI [Suspect]
  3. NORCO [Concomitant]
  4. MORPHINE [Concomitant]
  5. ZOFRAN [Concomitant]

REACTIONS (3)
  - Pulmonary embolism [None]
  - Deep vein thrombosis [None]
  - Thrombophlebitis superficial [None]
